FAERS Safety Report 13414095 (Version 2)
Quarter: 2017Q2

REPORT INFORMATION
  Report Type: Report from Study
  Country: IT (occurrence: IT)
  Receive Date: 20170407
  Receipt Date: 20170417
  Transmission Date: 20170830
  Serious: Yes (Other)
  Sender: FDA-Public Use
  Company Number: IT-MYLANLABS-2017M1021221

PATIENT

DRUGS (1)
  1. LEVETIRACETAM. [Suspect]
     Active Substance: LEVETIRACETAM
     Indication: EPILEPSY
     Dosage: 1500 MG, QD
     Route: 048
     Dates: start: 20170213

REACTIONS (4)
  - Rash pustular [Unknown]
  - Skin lesion [Unknown]
  - Ecchymosis [Unknown]
  - Capillary fragility [Unknown]

NARRATIVE: CASE EVENT DATE: 20170220
